FAERS Safety Report 14991241 (Version 1)
Quarter: 2018Q2

REPORT INFORMATION
  Report Type: Spontaneous
  Country: DE (occurrence: DE)
  Receive Date: 20180608
  Receipt Date: 20180608
  Transmission Date: 20180711
  Serious: Yes (Hospitalization)
  Sender: FDA-Public Use
  Company Number: DE-TEVA-2018-DE-903549

PATIENT
  Age: 59 Year
  Sex: Female

DRUGS (8)
  1. AMLODIPINE [Suspect]
     Active Substance: AMLODIPINE BESYLATE
     Dosage: 160|5 MG, 1-0-0-0
     Route: 065
  2. INSULIN HUMAN [Concomitant]
     Active Substance: INSULIN HUMAN
     Dosage: NACH SCHEMA
  3. TORASEMIDE [Suspect]
     Active Substance: TORSEMIDE
     Dosage: 10 MG, 2-0-0-0
     Route: 065
  4. METOPROLOL. [Suspect]
     Active Substance: METOPROLOL
     Dosage: 95 MG, 1-0-1-0
     Route: 065
  5. INSULIN ASPART [Concomitant]
     Active Substance: INSULIN ASPART
     Dosage: NACH SCHEMA
  6. INSULIN DETEMIR [Concomitant]
     Active Substance: INSULIN DETEMIR
     Dosage: 17 IE, 0-0-0-1
  7. ACETYLSALICYLIC ACID [Concomitant]
     Active Substance: ASPIRIN
     Dosage: 100 MG, 0-1-0-0
  8. LEVOTHYROXINE. [Concomitant]
     Active Substance: LEVOTHYROXINE
     Dosage: 100 ?G, 1-0-0-0

REACTIONS (2)
  - Gangrene [Unknown]
  - Drug prescribing error [Unknown]

NARRATIVE: CASE EVENT DATE: 20151003
